FAERS Safety Report 6845148-7 (Version None)
Quarter: 2010Q3

REPORT INFORMATION
  Report Type: 
  Country: None (occurrence: None)
  Receive Date: 20100715
  Receipt Date: 20070814
  Transmission Date: 20110219
  Serious: No
  Sender: FDA-Public Use
  Company Number: US-PFIZER INC-2007068549

PATIENT
  Sex: Male
  Weight: 100 kg

DRUGS (4)
  1. CHANTIX [Suspect]
     Indication: SMOKING CESSATION THERAPY
     Dates: start: 20070806
  2. LIPITOR [Concomitant]
  3. ANTIHYPERTENSIVES [Concomitant]
  4. MULTI-VITAMINS [Concomitant]

REACTIONS (1)
  - FATIGUE [None]
